FAERS Safety Report 11263407 (Version 4)
Quarter: 2015Q3

REPORT INFORMATION
  Report Type: Spontaneous
  Country: IT (occurrence: IT)
  Receive Date: 20150713
  Receipt Date: 20150812
  Transmission Date: 20151125
  Serious: Yes (Other)
  Sender: FDA-Public Use
  Company Number: IT-ROCHE-1606306

PATIENT
  Age: 71 Year
  Sex: Female

DRUGS (4)
  1. OLYSIO [Suspect]
     Active Substance: SIMEPREVIR
     Indication: HEPATIC CIRRHOSIS
     Dosage: 150 MG BLISTER PACK (PVC/PE/PVDC/AL) - 28 CAPSULES?14 DAYS CYCLE
     Route: 048
  2. COPEGUS [Suspect]
     Active Substance: RIBAVIRIN
     Indication: HEPATIC CIRRHOSIS
     Dosage: 200 MG- 168 TABLETS IN BOTTLE?14 DAYS CYCLE
     Route: 048
  3. SOVALDI [Suspect]
     Active Substance: SOFOSBUVIR
     Indication: HEPATIC CIRRHOSIS
     Dosage: 400 MG BOTTLE (HDPE) - 28 TABLETS?14 DAYS CYCLE
     Route: 048
  4. HYDROCHLOROTHIAZIDE/OLMESARTAN MEDOXOMIL [Concomitant]
     Active Substance: HYDROCHLOROTHIAZIDE\OLMESARTAN MEDOXOMIL
     Dosage: 20/15.5 MG (OLMESARTAN/ HYDROCHLOROTHIAZIDE)
     Route: 048

REACTIONS (1)
  - Pancreatic enzyme abnormality [Unknown]

NARRATIVE: CASE EVENT DATE: 20150625
